FAERS Safety Report 9785849 (Version 1)
Quarter: 2013Q4

REPORT INFORMATION
  Report Type: Spontaneous
  Country: IT (occurrence: None)
  Receive Date: 20131223
  Receipt Date: 20131223
  Transmission Date: 20140711
  Serious: Yes (Hospitalization)
  Sender: FDA-Public Use
  Company Number: B0954406A

PATIENT
  Age: 41 Year
  Sex: Female

DRUGS (2)
  1. PAROXETINE HYDROCHLORIDE (FORMULATION UNKNOWN) (GENERIC) (PAROXETINE HYDROCHLORIDE) [Suspect]
     Indication: DEPRESSION
  2. CLARITHROMYCIN [Concomitant]

REACTIONS (10)
  - Diffuse alveolar damage [None]
  - Respiratory failure [None]
  - Respiratory acidosis [None]
  - Tachypnoea [None]
  - Tachycardia [None]
  - Pyrexia [None]
  - Stupor [None]
  - Upper respiratory tract infection [None]
  - Traumatic lung injury [None]
  - Toxicity to various agents [None]
